FAERS Safety Report 24765718 (Version 1)
Quarter: 2024Q4

REPORT INFORMATION
  Report Type: Spontaneous
  Country: US (occurrence: US)
  Receive Date: 20241223
  Receipt Date: 20241223
  Transmission Date: 20250114
  Serious: Yes (Hospitalization)
  Sender: MARINUS PHARMACEUTICALS
  Company Number: US-MARINUS PHARMACEUTICALS, INC.-MAR2024000252

PATIENT

DRUGS (1)
  1. ZTALMY [Suspect]
     Active Substance: GANAXOLONE
     Indication: Product used for unknown indication
     Dosage: 4.6 MILLILITER, TID
     Route: 048

REACTIONS (1)
  - Respiratory syncytial virus infection [Unknown]

NARRATIVE: CASE EVENT DATE: 20241201
